FAERS Safety Report 18146828 (Version 2)
Quarter: 2020Q3

REPORT INFORMATION
  Report Type: Spontaneous
  Country: IE (occurrence: IE)
  Receive Date: 20200813
  Receipt Date: 20200928
  Transmission Date: 20201103
  Serious: Yes (Death)
  Sender: FDA-Public Use
  Company Number: IE-MYLANLABS-2020M1070310

PATIENT
  Age: 78 Year
  Sex: Male

DRUGS (16)
  1. NU?SEALS [Concomitant]
     Dosage: UNK, QD
  2. ZOPITAN [Concomitant]
     Active Substance: ZOPICLONE
     Dosage: 3.75 MG AT NIGHT
  3. LANSOPRAZOLE. [Concomitant]
     Active Substance: LANSOPRAZOLE
     Dosage: UNK UNK, QD
  4. SINGULAIR [Concomitant]
     Active Substance: MONTELUKAST SODIUM
     Dosage: 1 TABLET AT NIGHT
  5. NIZORAL [Concomitant]
     Active Substance: KETOCONAZOLE
     Dosage: UNK, PRN
  6. DONEPEZIL. [Concomitant]
     Active Substance: DONEPEZIL
     Indication: COGNITIVE DISORDER
     Dosage: UNK
  7. EXPUTEX [Concomitant]
     Indication: COUGH
     Dosage: 5 ML THREE TIMES A DAY, WHEN REQUIRED
  8. LACTULOSE. [Concomitant]
     Active Substance: LACTULOSE
     Indication: CONSTIPATION
     Dosage: UNK, PRN
  9. CITALOPRAM [Suspect]
     Active Substance: CITALOPRAM HYDROBROMIDE
     Indication: DEPRESSION
     Dosage: REPORTER NOT SURE ABOUT THE USE PRIOR TO 17/AUG/2015
     Route: 048
     Dates: start: 20150817, end: 20190510
  10. PARACETAMOL [Concomitant]
     Active Substance: ACETAMINOPHEN
     Indication: PYREXIA
  11. IMODIUM [Concomitant]
     Active Substance: LOPERAMIDE HYDROCHLORIDE
     Indication: DIARRHOEA
     Dosage: UNK UNK, PRN
  12. CALCICHEW?D3 FORTE [Concomitant]
     Active Substance: CALCIUM\CHOLECALCIFEROL
     Indication: COUGH
     Dosage: UNK, BID
  13. ETOFLAM                            /00598401/ [Concomitant]
     Indication: PAIN
     Dosage: 5% W/W GEL
  14. BISOPROLOL [Concomitant]
     Active Substance: BISOPROLOL
     Indication: ATRIAL FIBRILLATION
     Dosage: 1.25 MG IN THE MORNING
  15. PARACETAMOL [Concomitant]
     Active Substance: ACETAMINOPHEN
     Indication: PAIN
     Dosage: UNK UNK, PRN
  16. ATORVASTATIN [Concomitant]
     Active Substance: ATORVASTATIN
     Indication: HYPERCHOLESTEROLAEMIA
     Dosage: UNK UNK, QD

REACTIONS (1)
  - Drug level above therapeutic [Fatal]

NARRATIVE: CASE EVENT DATE: 2019
